FAERS Safety Report 15782817 (Version 3)
Quarter: 2019Q1

REPORT INFORMATION
  Report Type: Report from Study
  Country: US (occurrence: US)
  Receive Date: 20190102
  Receipt Date: 20190116
  Transmission Date: 20190417
  Serious: Yes (Other)
  Sender: FDA-Public Use
  Company Number: US-BAUSCH-BL-2018-036104

PATIENT
  Age: 39 Year
  Sex: Male

DRUGS (2)
  1. SILIQ [Suspect]
     Active Substance: BRODALUMAB
     Dosage: 210MG/1.5ML
     Route: 058
     Dates: end: 201812
  2. SILIQ [Suspect]
     Active Substance: BRODALUMAB
     Indication: PSORIASIS
     Dosage: 210MG/1.5ML, AT WEEK 0,1 AND 2 AS DIRECTED
     Route: 058

REACTIONS (8)
  - Product dose omission [Not Recovered/Not Resolved]
  - Abscess [Recovering/Resolving]
  - Application site infection [Not Recovered/Not Resolved]
  - Acne [Unknown]
  - Ill-defined disorder [Unknown]
  - Psoriasis [Unknown]
  - Rash [Not Recovered/Not Resolved]
  - Onychomycosis [Not Recovered/Not Resolved]

NARRATIVE: CASE EVENT DATE: 2018
